FAERS Safety Report 7352567 (Version 7)
Quarter: 2013Q2

REPORT INFORMATION
  Report Type: Spontaneous
  Country: JP (occurrence: JP)
  Receive Date: 20100412
  Receipt Date: 20130605
  Transmission Date: 20140414
  Serious: Yes (Hospitalization, Other)
  Sender: FDA-Public Use
  Company Number: PHHY2008JP11855

PATIENT
  Age: 3 Year
  Sex: Female
  Weight: 13 kg

DRUGS (18)
  1. CERTICAN [Suspect]
     Indication: HEART TRANSPLANT
     Dosage: 0.5 MG, UNK
     Route: 048
     Dates: start: 20060123, end: 20060130
  2. CERTICAN [Suspect]
     Dosage: 1 MG, UNK
     Route: 048
     Dates: start: 20060130, end: 20060203
  3. CERTICAN [Suspect]
     Dosage: 0.75 MG, UNK
     Route: 048
     Dates: start: 20060203, end: 20060424
  4. CERTICAN [Suspect]
     Dosage: 1 MG, DAILY
     Route: 048
     Dates: start: 20080123, end: 20090122
  5. CERTICAN [Suspect]
     Dosage: UNK
     Route: 048
     Dates: end: 20090205
  6. CERTICAN [Suspect]
     Dosage: UNK
  7. NEORAL [Suspect]
     Indication: HEART TRANSPLANT
     Dosage: UNK
  8. AZATHIOPRINE [Suspect]
     Indication: HEART TRANSPLANT
     Dosage: UNK
     Route: 048
  9. TACROLIMUS [Suspect]
     Indication: HEART TRANSPLANT
     Dosage: UNK
  10. CELLCEPT [Suspect]
     Indication: HEART TRANSPLANT
     Dosage: UNK UKN, UNK
     Route: 048
  11. PROGRAF [Suspect]
     Indication: HEART TRANSPLANT
     Dosage: 4.8 MG, UNK
     Route: 048
     Dates: end: 20060123
  12. PROGRAF [Suspect]
     Dosage: 4.5 MG, UNK
     Route: 048
     Dates: start: 20060123, end: 20060216
  13. PROGRAF [Suspect]
     Dosage: 3.0 MG, UNK
     Route: 048
     Dates: start: 20060216, end: 20060320
  14. PROGRAF [Suspect]
     Dosage: 4.0 MG, UNK
     Route: 048
     Dates: start: 20060320, end: 20060424
  15. TENORMIN [Concomitant]
     Dosage: 12 MG, UNK
     Route: 048
  16. GASTER [Concomitant]
     Dosage: 12 MG, UNK
     Route: 048
  17. SIROLIMUS [Concomitant]
     Dosage: UNK UKN, UNK
  18. EVEROLIMUS [Concomitant]
     Dosage: UNK UKN, UNK

REACTIONS (10)
  - Interstitial lung disease [Recovered/Resolved]
  - Pyrexia [Unknown]
  - Cough [Recovered/Resolved]
  - Respiratory syncytial virus infection [Recovered/Resolved]
  - Heart transplant rejection [Recovering/Resolving]
  - Nasopharyngitis [Recovered/Resolved]
  - Diarrhoea [Recovering/Resolving]
  - Renal impairment [Unknown]
  - Nausea [Recovering/Resolving]
  - Rash erythematous [Unknown]
